FAERS Safety Report 5063450-9 (Version None)
Quarter: 2006Q3

REPORT INFORMATION
  Report Type: 
  Country: None (occurrence: None)
  Receive Date: 20060727
  Receipt Date: 20060721
  Transmission Date: 20061208
  Serious: Yes (Other)
  Sender: FDA-Public Use
  Company Number: US-GLAXOSMITHKLINE-A0613107A

PATIENT
  Age: 70 Year
  Sex: Male

DRUGS (4)
  1. FLOVENT [Suspect]
     Indication: ASTHMA
     Dosage: 2PUFF TWICE PER DAY
     Route: 055
  2. ALBUTEROL SPIROS [Concomitant]
  3. IPRATROPIUM BROMIDE [Concomitant]
  4. TRAZODONE HCL [Concomitant]

REACTIONS (4)
  - BRONCHITIS [None]
  - COCCIDIOIDOMYCOSIS [None]
  - HERPES ZOSTER OPHTHALMIC [None]
  - PNEUMONIA [None]
